FAERS Safety Report 25865319 (Version 3)
Quarter: 2025Q4

REPORT INFORMATION
  Report Type: Spontaneous
  Country: EG (occurrence: EG)
  Receive Date: 20250930
  Receipt Date: 20251015
  Transmission Date: 20260117
  Serious: Yes (Hospitalization, Other)
  Sender: NOVO NORDISK
  Company Number: EG-NOVOPROD-1527238

PATIENT
  Age: 63 Year
  Sex: Female
  Weight: 85 kg

DRUGS (10)
  1. NOVORAPID [Suspect]
     Active Substance: INSULIN ASPART
     Indication: Diabetes mellitus
     Dosage: 33 IU (14U BEFORE BREAKFAST, 14U BEFORE LUNCH AND 5U  IN CASE SHE EATS DINNER MEAL) FROM A YEAR AGO
     Route: 058
  2. TRESIBA [Suspect]
     Active Substance: INSULIN DEGLUDEC
     Indication: Diabetes mellitus
     Dosage: 35U, FROM 4-5 YEARS
     Route: 058
  3. LANTUS [Suspect]
     Active Substance: INSULIN GLARGINE
     Indication: Diabetes mellitus
     Dosage: UNK
  4. .ALPHA.-LIPOIC ACID [Concomitant]
     Active Substance: .ALPHA.-LIPOIC ACID
     Indication: Nervousness
     Dosage: ONE TABLET BEFORE BREAKFAST. 20-25 YEARS AGO
  5. CONTROLOC [Concomitant]
     Active Substance: PANTOPRAZOLE SODIUM
     Indication: Gastrointestinal disorder
     Dosage: UNK, FROM ABOUT 4 YEARS AGO
  6. CRESTOR [Concomitant]
     Active Substance: ROSUVASTATIN CALCIUM
     Indication: Blood cholesterol abnormal
     Dosage: UNK, FROM ABOUT 4 YEARS AGO
  7. SELENIUM [Concomitant]
     Active Substance: SELENIUM
     Indication: Cataract
     Dosage: UNKFROM ABOUT 4 YEARS AGO
  8. SYSTANE ULTRA [Concomitant]
     Active Substance: POLYETHYLENE GLYCOL 400\PROPYLENE GLYCOL
     Indication: Cataract
     Dosage: UNK, FROM ABOUT 4 YEARS AGO
  9. METHYLCOBALAMIN [Concomitant]
     Active Substance: METHYLCOBALAMIN
     Indication: Nervous system disorder
     Dosage: UNK, STARTED FROM 4 YEARS, ORODISOLVABLE FILM, ONCE DAILY
  10. DAPAGLIF PLUS [Concomitant]
     Indication: Type 2 diabetes mellitus
     Dosage: UNK, 10/1000MG FROM ABOUT 4 YEARS AGO (ONGOING), ONE TABLET BEFORE BREAKFAST.

REACTIONS (3)
  - Fall [Recovered/Resolved]
  - Ankle fracture [Recovered/Resolved]
  - Cataract operation [Recovered/Resolved]

NARRATIVE: CASE EVENT DATE: 20200101
